FAERS Safety Report 4845816-2 (Version None)
Quarter: 2005Q4

REPORT INFORMATION
  Report Type: 
  Country: None (occurrence: None)
  Receive Date: 20051202
  Receipt Date: 20051202
  Transmission Date: 20060501
  Serious: Yes (Life-Threatening)
  Sender: FDA-Public Use
  Company Number: None

PATIENT
  Sex: Female
  Weight: 121.564 kg

DRUGS (2)
  1. CEFTRIAXONE   10 GM    SANDOZ [Suspect]
     Indication: POSTOPERATIVE WOUND INFECTION
     Dosage: 2000 MG   EVERY 24 HRS   IV
     Route: 042
     Dates: start: 20051031, end: 20051130
  2. VANCOMYCIN   5 GM     ABBOTT LABS [Suspect]
     Indication: POSTOPERATIVE WOUND INFECTION
     Dosage: 1100 MG    EVERY 12 HOURS    IV
     Route: 042
     Dates: start: 20051031, end: 20051130

REACTIONS (2)
  - NEUTROPHIL COUNT DECREASED [None]
  - WHITE BLOOD CELL COUNT DECREASED [None]
